FAERS Safety Report 4717181-2 (Version None)
Quarter: 2005Q3

REPORT INFORMATION
  Report Type: 
  Country: None (occurrence: None)
  Receive Date: 20050712
  Receipt Date: 20040608
  Transmission Date: 20060218
  Serious: Yes (Life-Threatening, Other)
  Sender: FDA-Public Use
  Company Number: PHEH2004US06333

PATIENT
  Age: 41 Year
  Sex: Female

DRUGS (8)
  1. GLEEVEC [Suspect]
     Indication: LEUKAEMIA
     Dosage: 200 MG, QD, ORAL
     Route: 048
     Dates: start: 20040301, end: 20040401
  2. PREVACID [Suspect]
     Indication: GASTROOESOPHAGEAL REFLUX DISEASE
     Dosage: 30 MG, QD, ORAL
     Route: 048
     Dates: start: 20030101
  3. GLUCOPHAGE [Concomitant]
  4. ACTOS (PIOGLITAZONE, PIOGLITAZONE HYDROCHLORIDE) [Concomitant]
  5. CELEBREX [Concomitant]
  6. COZAAR [Concomitant]
  7. ZETIA [Concomitant]
  8. HYDROCHLOROTHIAZIDE [Concomitant]

REACTIONS (4)
  - ABDOMINAL PAIN UPPER [None]
  - CONFUSIONAL STATE [None]
  - DIARRHOEA [None]
  - NAUSEA [None]
